FAERS Safety Report 20769386 (Version 1)
Quarter: 2022Q2

REPORT INFORMATION
  Report Type: Spontaneous
  Country: US (occurrence: US)
  Receive Date: 20220429
  Receipt Date: 20220429
  Transmission Date: 20220721
  Serious: Yes (Other)
  Sender: FDA-Public Use
  Company Number: US-PFIZER INC-202200591872

PATIENT
  Age: 28 Year
  Sex: Male

DRUGS (5)
  1. KETAMINE HYDROCHLORIDE [Suspect]
     Active Substance: KETAMINE HYDROCHLORIDE
     Indication: Hallucination
     Dosage: 4000 MG
  2. KETAMINE HYDROCHLORIDE [Suspect]
     Active Substance: KETAMINE HYDROCHLORIDE
     Dosage: 1 G, PER DAY
  3. PENTOSAN POLYSULFATE [Suspect]
     Active Substance: PENTOSAN POLYSULFATE
  4. OXYBUTYNIN [Concomitant]
     Active Substance: OXYBUTYNIN
  5. GABAPENTIN [Concomitant]
     Active Substance: GABAPENTIN
     Dosage: 300 MG, THREE TIMES DAILY

REACTIONS (4)
  - Drug dependence [Unknown]
  - Cystitis [Unknown]
  - Haematuria [Recovered/Resolved]
  - Off label use [Unknown]
